FAERS Safety Report 15464914 (Version 2)
Quarter: 2018Q4

REPORT INFORMATION
  Report Type: Spontaneous
  Country: US (occurrence: US)
  Receive Date: 20181004
  Receipt Date: 20181009
  Transmission Date: 20190204
  Serious: No
  Sender: FDA-Public Use
  Company Number: US-PFIZER INC-2018397251

PATIENT
  Age: 29 Year
  Sex: Female
  Weight: 62.59 kg

DRUGS (3)
  1. LYRICA [Suspect]
     Active Substance: PREGABALIN
     Dosage: UNK, DAILY (CUT HER DOSE DOWN TO 1-2 CAPSULES)
     Route: 048
  2. PERCOCET [OXYCODONE HYDROCHLORIDE;PARACETAMOL] [Concomitant]
     Indication: BACK PAIN
     Dosage: UNK
     Dates: start: 20120703
  3. LYRICA [Suspect]
     Active Substance: PREGABALIN
     Indication: NEURALGIA
     Dosage: 3 DF, DAILY
     Route: 048
     Dates: start: 20150620

REACTIONS (5)
  - Intentional product misuse [Unknown]
  - Withdrawal syndrome [Unknown]
  - Nausea [Unknown]
  - Abdominal discomfort [Not Recovered/Not Resolved]
  - Diarrhoea [Unknown]

NARRATIVE: CASE EVENT DATE: 20180924
